FAERS Safety Report 4490670-4 (Version None)
Quarter: 2004Q4

REPORT INFORMATION
  Report Type: 
  Country: None (occurrence: None)
  Receive Date: 20041102
  Receipt Date: 20041006
  Transmission Date: 20050328
  Serious: Yes (Other)
  Sender: FDA-Public Use
  Company Number: US-GLAXOSMITHKLINE-A0528776A

PATIENT
  Age: 68 Year
  Sex: Male

DRUGS (4)
  1. WELLBUTRIN [Suspect]
     Indication: DEPRESSION
     Dosage: 225MG PER DAY
     Route: 048
  2. ZOLOFT [Suspect]
     Indication: DEPRESSION
  3. CLONAZEPAM [Suspect]
     Indication: DRUG USE FOR UNKNOWN INDICATION
  4. REMERON [Suspect]
     Indication: DRUG USE FOR UNKNOWN INDICATION
     Dosage: 15MG SINGLE DOSE

REACTIONS (5)
  - ANXIETY [None]
  - BENIGN PROSTATIC HYPERPLASIA [None]
  - MAJOR DEPRESSION [None]
  - POLYURIA [None]
  - URINARY RETENTION [None]
